FAERS Safety Report 6589086-6 (Version None)
Quarter: 2010Q1

REPORT INFORMATION
  Report Type: 
  Country: None (occurrence: None)
  Receive Date: 20100218
  Receipt Date: 20100209
  Transmission Date: 20100710
  Serious: Yes (Other)
  Sender: FDA-Public Use
  Company Number: GXKR2010DE01847

PATIENT
  Sex: Male

DRUGS (13)
  1. AMLODIPIN HEXAL (NGX) [Suspect]
     Indication: HYPERTENSION
     Dosage: 10 MG, UNK
     Route: 048
  2. BLOPRESS [Suspect]
     Route: 048
  3. ARGININE [Concomitant]
     Indication: HYPERTENSION
  4. TEBONIN [Concomitant]
     Indication: TINNITUS
  5. GELOMYRTOL [Concomitant]
     Indication: INFLUENZA LIKE ILLNESS
     Route: 048
  6. ESBERITOX [Concomitant]
     Indication: INFLUENZA LIKE ILLNESS
  7. PROSPAN [Concomitant]
     Indication: INFLUENZA LIKE ILLNESS
     Route: 048
  8. DEVIL'S CLAW [Concomitant]
     Indication: ARTHRALGIA
     Route: 048
  9. OCUVITE                            /01053801/ [Concomitant]
     Indication: VISUAL IMPAIRMENT
     Route: 048
  10. NISITA [Concomitant]
     Indication: DRY MOUTH
     Route: 048
  11. CETIRIZINE HCL [Concomitant]
     Indication: PARAESTHESIA
     Route: 048
  12. PREDNISOLON [Concomitant]
     Indication: ARTHRALGIA
     Route: 048
  13. VITAMINS [Concomitant]
     Indication: NEUROPATHY PERIPHERAL
     Route: 048

REACTIONS (14)
  - ARRHYTHMIA [None]
  - ARTHRALGIA [None]
  - DRUG EFFECT DECREASED [None]
  - DRUG INTERACTION [None]
  - HYPERTENSIVE CRISIS [None]
  - INFLUENZA LIKE ILLNESS [None]
  - MYALGIA [None]
  - NEUROPATHY PERIPHERAL [None]
  - OEDEMA MUCOSAL [None]
  - PALPITATIONS [None]
  - PARAESTHESIA [None]
  - TINNITUS [None]
  - TREMOR [None]
  - VISUAL IMPAIRMENT [None]
